FAERS Safety Report 10553702 (Version 1)
Quarter: 2014Q4

REPORT INFORMATION
  Report Type: Report from Study
  Country: AR (occurrence: AR)
  Receive Date: 20141030
  Receipt Date: 20141030
  Transmission Date: 20150529
  Serious: Yes (Hospitalization, Other)
  Sender: FDA-Public Use
  Company Number: PHHY2014AR141108

PATIENT
  Sex: Male

DRUGS (3)
  1. EXJADE [Suspect]
     Active Substance: DEFERASIROX
     Indication: IRON OVERLOAD
     Dosage: UNK
     Route: 048
     Dates: start: 2005, end: 2010
  2. DESFERAL [Suspect]
     Active Substance: DEFEROXAMINE MESYLATE
     Indication: IRON OVERLOAD
     Dosage: UNK
     Route: 065
     Dates: start: 2010
  3. EXJADE [Suspect]
     Active Substance: DEFERASIROX
     Dosage: UNK
     Route: 048
     Dates: start: 2011

REACTIONS (3)
  - Fatigue [Recovering/Resolving]
  - Osteonecrosis [Recovering/Resolving]
  - Cardiac siderosis [Recovering/Resolving]

NARRATIVE: CASE EVENT DATE: 2010
